FAERS Safety Report 6974168-7 (Version None)
Quarter: 2010Q3

REPORT INFORMATION
  Report Type: 
  Country: None (occurrence: None)
  Receive Date: 20100824
  Receipt Date: 20100512
  Transmission Date: 20110219
  Serious: No
  Sender: FDA-Public Use
  Company Number: 308858

PATIENT
  Age: 54 Year
  Sex: Male

DRUGS (7)
  1. VICTOZA [Suspect]
     Indication: TYPE 2 DIABETES MELLITUS
     Dosage: SUBCUTANEOUS
     Route: 058
     Dates: start: 20100216
  2. FISH LIVER (DOCOSAHEXANOIC ACID, EICOSAPENTAENOIC ACID) [Concomitant]
  3. ACTOS [Concomitant]
  4. B COMPLEX /00212701/ (NICOTINAMIDE, PYRIDOXINE HYDROCHLORIDE, RIBOFLAV [Concomitant]
  5. ASPIRIN [Concomitant]
  6. ZOCOR [Concomitant]
  7. MULTIVITAMIN /00097801/ (ASCORBIC ACID, CALCUM PANTOTHENATE, ERGOCALCI [Concomitant]

REACTIONS (1)
  - CONTUSION [None]
